FAERS Safety Report 5442892-3 (Version None)
Quarter: 2007Q3

REPORT INFORMATION
  Report Type: 
  Country: None (occurrence: None)
  Receive Date: 20070831
  Receipt Date: 20070831
  Transmission Date: 20080115
  Serious: Yes (Other)
  Sender: FDA-Public Use
  Company Number: None

PATIENT
  Sex: Female
  Weight: 72.5755 kg

DRUGS (3)
  1. OXYCONTIN [Suspect]
     Indication: ARTHRITIS
     Dosage: # 60 1 PO BID
     Route: 048
     Dates: start: 20070803
  2. OXYCONTIN [Suspect]
     Indication: DRUG THERAPY
     Dosage: # 60 1 PO BID
     Route: 048
     Dates: start: 20070803
  3. OXYCONTIN [Suspect]
     Indication: SURGERY
     Dosage: # 60 1 PO BID
     Route: 048
     Dates: start: 20070803

REACTIONS (3)
  - PRODUCTIVE COUGH [None]
  - RESPIRATION ABNORMAL [None]
  - SPUTUM DISCOLOURED [None]
